FAERS Safety Report 8903600 (Version 3)
Quarter: 2013Q2

REPORT INFORMATION
  Report Type: Spontaneous
  Country: US (occurrence: US)
  Receive Date: 20121113
  Receipt Date: 20130409
  Transmission Date: 20140414
  Serious: No
  Sender: FDA-Public Use
  Company Number: US-TEVA-369803USA

PATIENT
  Sex: Female

DRUGS (15)
  1. COPAXONE [Suspect]
     Indication: MULTIPLE SCLEROSIS
  2. LISINOPRIL/HCTZ [Concomitant]
  3. ARTIFICIAL TEARS [Concomitant]
  4. NORTRIPTYLINE [Concomitant]
  5. ARIPIPRAZOLE [Concomitant]
  6. ROSUVASTATIN [Concomitant]
  7. GABAPENTIN [Concomitant]
  8. LIDOCAINE [Concomitant]
  9. BACLOFEN [Concomitant]
  10. OXYBUTININ [Concomitant]
  11. IBUPROFEN [Concomitant]
  12. VITAMIN D [Concomitant]
  13. CALCIUM [Concomitant]
  14. ESTROGEN [Concomitant]
  15. SENOKOT [Concomitant]

REACTIONS (6)
  - Injection site mass [Recovered/Resolved]
  - Product deposit [Recovered/Resolved]
  - Injection site induration [Unknown]
  - Injection site erythema [Recovered/Resolved]
  - Injection site swelling [Recovered/Resolved]
  - Injection site pain [Recovered/Resolved]
